FAERS Safety Report 10975377 (Version 2)
Quarter: 2015Q2

REPORT INFORMATION
  Report Type: Spontaneous
  Country: US (occurrence: US)
  Receive Date: 20150401
  Receipt Date: 20150410
  Transmission Date: 20150821
  Serious: Yes (Other)
  Sender: FDA-Public Use
  Company Number: US-GLAXOSMITHKLINE-US2015GSK041809

PATIENT
  Sex: Male

DRUGS (1)
  1. FLOVENT HFA [Suspect]
     Active Substance: FLUTICASONE PROPIONATE
     Indication: EOSINOPHILIC OESOPHAGITIS
     Dosage: 1 DF, BID
     Dates: start: 201503

REACTIONS (11)
  - Skin ulcer [Unknown]
  - Sensitivity of teeth [Unknown]
  - Mouth ulceration [Unknown]
  - Tongue ulceration [Unknown]
  - Noninfective gingivitis [Unknown]
  - Feeding disorder [Unknown]
  - Dysphagia [Unknown]
  - Emergency care examination [Recovered/Resolved]
  - Malaise [Unknown]
  - Pharyngeal ulceration [Unknown]
  - Pain [Unknown]

NARRATIVE: CASE EVENT DATE: 201503
